FAERS Safety Report 5049703-9 (Version None)
Quarter: 2006Q3

REPORT INFORMATION
  Report Type: 
  Country: None (occurrence: None)
  Receive Date: 20060707
  Receipt Date: 20060615
  Transmission Date: 20061208
  Serious: Yes (Other)
  Sender: FDA-Public Use
  Company Number: 2005US000165

PATIENT
  Age: 12 Year
  Sex: Female

DRUGS (1)
  1. PROTOPIC [Suspect]
     Indication: MOLLUSCUM CONTAGIOSUM
     Dosage: TOPICAL
     Route: 061
     Dates: start: 20040801

REACTIONS (1)
  - MALIGNANT MELANOMA [None]
